FAERS Safety Report 14690823 (Version 1)
Quarter: 2018Q1

REPORT INFORMATION
  Report Type: Spontaneous
  Country: GR (occurrence: GR)
  Receive Date: 20180328
  Receipt Date: 20180328
  Transmission Date: 20180509
  Serious: Yes (Death)
  Sender: FDA-Public Use
  Company Number: GR-BAUSCH-BL-2018-007218

PATIENT
  Age: 67 Year
  Sex: Male

DRUGS (6)
  1. DEXAMETHASONE. [Suspect]
     Active Substance: DEXAMETHASONE
     Indication: CHRONIC LYMPHOCYTIC LEUKAEMIA
  2. BORTEZOMIB [Suspect]
     Active Substance: BORTEZOMIB
     Indication: PLASMABLASTIC LYMPHOMA
     Dosage: (1.3 MG/M2 ON DAYS 1, 4, 8, AND 11)
     Route: 065
  3. CYCLOPHOSPHAMIDE. [Suspect]
     Active Substance: CYCLOPHOSPHAMIDE
     Indication: CHRONIC LYMPHOCYTIC LEUKAEMIA
  4. DEXAMETHASONE. [Suspect]
     Active Substance: DEXAMETHASONE
     Indication: PLASMABLASTIC LYMPHOMA
     Dosage: (40 MG ON DAYS 1-4, 8-11, AND 15-18)
     Route: 065
  5. CYCLOPHOSPHAMIDE. [Suspect]
     Active Substance: CYCLOPHOSPHAMIDE
     Indication: PLASMABLASTIC LYMPHOMA
     Dosage: 4-6 CYCLE
     Route: 065
  6. BORTEZOMIB [Suspect]
     Active Substance: BORTEZOMIB
     Indication: CHRONIC LYMPHOCYTIC LEUKAEMIA

REACTIONS (1)
  - Pneumonia aspiration [Fatal]
